FAERS Safety Report 20729752 (Version 1)
Quarter: 2022Q2

REPORT INFORMATION
  Report Type: Spontaneous
  Country: ES (occurrence: ES)
  Receive Date: 20220420
  Receipt Date: 20220420
  Transmission Date: 20220721
  Serious: Yes (Life-Threatening, Hospitalization, Other)
  Sender: FDA-Public Use
  Company Number: ES-BRISTOL-MYERS SQUIBB COMPANY-2022-020179

PATIENT
  Age: 61 Year
  Sex: Female

DRUGS (2)
  1. NIVOLUMAB [Suspect]
     Active Substance: NIVOLUMAB
     Indication: Choroid melanoma
     Dosage: DOSE : NIVO 3 MG/KG + IPI 1 MG/KG;     FREQ : UNAVAILABLE
     Route: 065
  2. IPILIMUMAB [Suspect]
     Active Substance: IPILIMUMAB
     Indication: Choroid melanoma
     Route: 065

REACTIONS (5)
  - Neuropathy peripheral [Unknown]
  - Diarrhoea [Unknown]
  - Pyrexia [Unknown]
  - Encephalitis [Unknown]
  - Skin toxicity [Unknown]
